FAERS Safety Report 23845023 (Version 1)
Quarter: 2024Q2

REPORT INFORMATION
  Report Type: Spontaneous
  Country: PT (occurrence: PT)
  Receive Date: 20240511
  Receipt Date: 20240511
  Transmission Date: 20240716
  Serious: Yes (Other)
  Sender: FDA-Public Use
  Company Number: None

PATIENT
  Age: 78 Year
  Sex: Female
  Weight: 55 kg

DRUGS (2)
  1. ANASTROZOLE [Suspect]
     Active Substance: ANASTROZOLE
     Indication: Breast neoplasm
     Dosage: 1 TABLET PER DAY?ANASTROZOL TEVA
     Route: 048
     Dates: start: 20231002, end: 20240125
  2. ANASTROZOLE [Suspect]
     Active Substance: ANASTROZOLE
     Indication: Breast neoplasm
     Dosage: 1 TABLET PER DAY?ANASTROZOL ACCORD
     Route: 048
     Dates: start: 20240126, end: 20240414

REACTIONS (4)
  - Tooth loss [Recovered/Resolved]
  - Product substitution issue [Recovered/Resolved]
  - Balance disorder [Recovered/Resolved]
  - Immobile [Recovered/Resolved]

NARRATIVE: CASE EVENT DATE: 20231002
